FAERS Safety Report 4979042-3 (Version None)
Quarter: 2006Q2

REPORT INFORMATION
  Report Type: 
  Country: None (occurrence: None)
  Receive Date: 20060421
  Receipt Date: 20060412
  Transmission Date: 20061013
  Serious: Yes (Hospitalization)
  Sender: FDA-Public Use
  Company Number: DE-JNJFOC-20060306004

PATIENT
  Sex: Male
  Weight: 90 kg

DRUGS (2)
  1. EPI-PEVARYL [Suspect]
     Dates: start: 20060221
  2. EPI-PEVARYL [Suspect]
     Indication: FUNGAL INFECTION
     Dates: start: 20060221

REACTIONS (2)
  - ATRIAL FIBRILLATION [None]
  - DYSPNOEA [None]
